FAERS Safety Report 5692209-4 (Version None)
Quarter: 2008Q2

REPORT INFORMATION
  Report Type: 
  Country: None (occurrence: None)
  Receive Date: 20080402
  Receipt Date: 20080321
  Transmission Date: 20081010
  Serious: Yes (Hospitalization, Other)
  Sender: FDA-Public Use
  Company Number: FR-BRISTOL-MYERS SQUIBB COMPANY-14123160

PATIENT
  Age: 57 Year
  Sex: Male

DRUGS (8)
  1. ABATACEPT [Suspect]
     Indication: CROHN'S DISEASE
     Route: 042
     Dates: start: 20080205, end: 20080307
  2. PREVISCAN [Concomitant]
     Dates: start: 20060101
  3. RIMIFON [Concomitant]
     Dates: start: 20071024
  4. METHOTREXATE [Concomitant]
     Dates: end: 20080205
  5. LOPERAMIDE HCL [Concomitant]
  6. FOLIC ACID [Concomitant]
     Dates: end: 20080205
  7. ISPAGHULA [Concomitant]
  8. MAGNESIUM [Concomitant]
     Dates: start: 20071207

REACTIONS (1)
  - PURPURA [None]
